FAERS Safety Report 23145357 (Version 1)
Quarter: 2023Q4

REPORT INFORMATION
  Report Type: Spontaneous
  Country: GB (occurrence: GB)
  Receive Date: 20231103
  Receipt Date: 20231103
  Transmission Date: 20240109
  Serious: Yes (Other)
  Sender: FDA-Public Use
  Company Number: GB-MHRA-MED-202310091342276080-ZPNMT

PATIENT
  Age: 55 Year
  Sex: Female
  Weight: 71 kg

DRUGS (1)
  1. GABAPENTIN [Suspect]
     Active Substance: GABAPENTIN
     Indication: Osteoarthritis
     Dosage: 100 MILLIGRAM, QD, (ONCE AT NIGHT)
     Route: 065
     Dates: start: 20230929, end: 20230930

REACTIONS (4)
  - Urinary incontinence [Recovered/Resolved]
  - Dizziness [Unknown]
  - Nausea [Unknown]
  - Headache [Unknown]

NARRATIVE: CASE EVENT DATE: 20230929
